FAERS Safety Report 13668302 (Version 15)
Quarter: 2018Q3

REPORT INFORMATION
  Report Type: Report from Study
  Country: AT (occurrence: AT)
  Receive Date: 20170620
  Receipt Date: 20180704
  Transmission Date: 20181010
  Serious: Yes (Death, Hospitalization, Other)
  Sender: FDA-Public Use
  Company Number: AT-INCYTE CORPORATION-2014IN002710

PATIENT

DRUGS (9)
  1. JAKAVI [Suspect]
     Active Substance: RUXOLITINIB
     Dosage: 10 MG, BID
     Route: 048
     Dates: start: 20131010, end: 20131218
  2. JAKAVI [Suspect]
     Active Substance: RUXOLITINIB
     Dosage: 10 MG, BID
     Route: 065
     Dates: start: 20170315
  3. JAKAVI [Suspect]
     Active Substance: RUXOLITINIB
     Dosage: 10 MG, BID
     Route: 048
     Dates: start: 20160921
  4. JAKAVI [Suspect]
     Active Substance: RUXOLITINIB
     Dosage: 10 MG, BID
     Route: 065
     Dates: start: 201609
  5. JAKAVI [Suspect]
     Active Substance: RUXOLITINIB
     Dosage: 10 MG, BID
     Route: 048
     Dates: start: 20160727
  6. JAKAVI [Suspect]
     Active Substance: RUXOLITINIB
     Indication: MYELODYSPLASTIC SYNDROME
     Dosage: (5 MG MORNING AND 10 MG IN EVENING)15 MG, QD
     Route: 048
     Dates: start: 20130725, end: 20131009
  7. JAKAVI [Suspect]
     Active Substance: RUXOLITINIB
     Dosage: 5 MG, BID
     Route: 048
     Dates: start: 20131219
  8. JAKAVI [Suspect]
     Active Substance: RUXOLITINIB
     Dosage: 10 MG, BID
     Route: 065
     Dates: start: 20170228
  9. JAKAVI [Suspect]
     Active Substance: RUXOLITINIB
     Indication: MYELOFIBROSIS
     Dosage: 10 MG, BID
     Route: 048
     Dates: start: 20130704, end: 20130724

REACTIONS (39)
  - Synovial cyst [Recovered/Resolved]
  - Dysphonia [Not Recovered/Not Resolved]
  - Hyperkalaemia [Recovered/Resolved]
  - Splenomegaly [Not Recovered/Not Resolved]
  - Peripheral swelling [Recovered/Resolved]
  - White blood cell count increased [Unknown]
  - C-reactive protein increased [Recovered/Resolved]
  - Trigeminal neuralgia [Recovered/Resolved]
  - Abscess limb [Recovered/Resolved]
  - Inflammation [Recovered/Resolved]
  - Oedema peripheral [Unknown]
  - Erysipelas [Recovered/Resolved]
  - Myalgia [Recovered/Resolved]
  - Weight decreased [Unknown]
  - Emphysema [Unknown]
  - Constipation [Not Recovered/Not Resolved]
  - Cachexia [Not Recovered/Not Resolved]
  - Myelodysplastic syndrome [Fatal]
  - General physical health deterioration [Unknown]
  - Staphylococcal abscess [Recovered/Resolved]
  - Infection [Recovered/Resolved]
  - Blood lactate dehydrogenase increased [Unknown]
  - Neck pain [Not Recovered/Not Resolved]
  - Pain in extremity [Recovered/Resolved]
  - Tachycardia [Not Recovered/Not Resolved]
  - Ascites [Not Recovered/Not Resolved]
  - Dry skin [Not Recovered/Not Resolved]
  - Haemoglobin decreased [Unknown]
  - Staphylococcal sepsis [Recovered/Resolved]
  - Lymphangitis [Recovered/Resolved]
  - Platelet count decreased [Unknown]
  - Cardiac failure [Fatal]
  - Dermatitis [Recovered/Resolved]
  - Bone marrow oedema [Recovered/Resolved]
  - Gamma-glutamyltransferase increased [Unknown]
  - Hypokalaemia [Not Recovered/Not Resolved]
  - Stomatitis [Not Recovered/Not Resolved]
  - Muscle haemorrhage [Recovered/Resolved]
  - Skin ulcer [Recovered/Resolved]

NARRATIVE: CASE EVENT DATE: 20131118
